FAERS Safety Report 8929053 (Version 3)
Quarter: 2012Q4

REPORT INFORMATION
  Report Type: 
  Country: DE (occurrence: DE)
  Receive Date: 20121128
  Receipt Date: 20121217
  Transmission Date: 20130627
  Serious: Yes (Other)
  Sender: FDA-Public Use
  Company Number: PHHY2012DE108650

PATIENT
  Age: 78 None
  Sex: Female
  Weight: 57 kg

DRUGS (2)
  1. EXELON PATCH [Suspect]
     Indication: DEMENTIA ALZHEIMER^S TYPE
     Dosage: 4.6 mg, QD
     Route: 062
     Dates: start: 201208, end: 201209
  2. EXELON PATCH [Suspect]
     Dosage: 9.5 mg, QD
     Route: 062
     Dates: end: 20121212

REACTIONS (3)
  - Suicidal ideation [Not Recovered/Not Resolved]
  - Pruritus [Not Recovered/Not Resolved]
  - Erythema [Not Recovered/Not Resolved]
